FAERS Safety Report 10257483 (Version 1)
Quarter: 2014Q2

REPORT INFORMATION
  Report Type: Spontaneous
  Country: US (occurrence: None)
  Receive Date: 20140623
  Receipt Date: 20140623
  Transmission Date: 20141212
  Serious: Yes (Life-Threatening, Hospitalization, Disabling)
  Sender: FDA-Public Use
  Company Number: None

PATIENT
  Age: 27 Year
  Sex: Male
  Weight: 61.24 kg

DRUGS (1)
  1. ZYPREXA [Suspect]
     Dosage: ONCE DAILY, ORAL
     Dates: start: 20140501, end: 20140508

REACTIONS (4)
  - Rash [None]
  - Convulsion [None]
  - Chest pain [None]
  - Movement disorder [None]
